FAERS Safety Report 5349776-X (Version None)
Quarter: 2007Q2

REPORT INFORMATION
  Report Type: 
  Country: None (occurrence: None)
  Receive Date: 20070607
  Receipt Date: 20070604
  Transmission Date: 20071010
  Serious: Yes (Hospitalization)
  Sender: FDA-Public Use
  Company Number: US-BRISTOL-MYERS SQUIBB COMPANY-13802541

PATIENT
  Age: 48 Year
  Sex: Female
  Weight: 55 kg

DRUGS (6)
  1. CETUXIMAB [Suspect]
     Indication: COLORECTAL CANCER
     Route: 042
     Dates: start: 20070426, end: 20070426
  2. ENZASTAURIN [Suspect]
     Indication: COLORECTAL CANCER
     Route: 048
     Dates: start: 20070427, end: 20070429
  3. CPT-11 [Suspect]
     Indication: COLORECTAL CANCER
     Route: 042
     Dates: start: 20070426
  4. PEPCID [Concomitant]
     Dates: start: 20070101
  5. COMPAZINE [Concomitant]
     Dates: start: 20070101
  6. IMODIUM [Concomitant]
     Dates: start: 20070501

REACTIONS (3)
  - DIARRHOEA [None]
  - FEBRILE NEUTROPENIA [None]
  - SEPSIS [None]
